FAERS Safety Report 7226788-2 (Version None)
Quarter: 2011Q1

REPORT INFORMATION
  Report Type: 
  Country: None (occurrence: None)
  Receive Date: 20110110
  Receipt Date: 20110110
  Transmission Date: 20110831
  Serious: Yes (Hospitalization)
  Sender: FDA-Public Use
  Company Number: None

PATIENT
  Sex: Female
  Weight: 45.3597 kg

DRUGS (10)
  1. POTASSIUM CHLORIDE [Concomitant]
  2. ALBUTEROL [Concomitant]
  3. OXYCODONE HCL [Concomitant]
  4. OXYCODONE HCL EXTENDED-RELEASE [Concomitant]
  5. ERLOTINIB HYDROCHLORIDE [Suspect]
     Indication: NON-SMALL CELL LUNG CANCER
     Dosage: 150 MG ORAL, DAILY
     Route: 048
     Dates: start: 20101103, end: 20101207
  6. OXYCODONE HCL EXTENDED-RELEASE [Concomitant]
  7. OXYCODONE HCL [Concomitant]
  8. ACETAMINOPHEN AND HYDROCODONE BITARTRATE [Concomitant]
  9. PAXIL [Concomitant]
  10. OSOMEPRAZOLE (NEXIUM) [Concomitant]

REACTIONS (6)
  - LUNG ADENOCARCINOMA STAGE IV [None]
  - NEOPLASM MALIGNANT [None]
  - BACK PAIN [None]
  - PAIN [None]
  - CHEST PAIN [None]
  - ABDOMINAL PAIN [None]
